FAERS Safety Report 13546133 (Version 4)
Quarter: 2020Q2

REPORT INFORMATION
  Report Type: Spontaneous
  Country: IT (occurrence: IT)
  Receive Date: 20170515
  Receipt Date: 20200522
  Transmission Date: 20200713
  Serious: Yes (Life-Threatening, Hospitalization, Other)
  Sender: FDA-Public Use
  Company Number: IT-PFIZER INC-2017209748

PATIENT
  Age: 98 Year
  Sex: Male
  Weight: 55 kg

DRUGS (3)
  1. CIPROFLOXACIN. [Suspect]
     Active Substance: CIPROFLOXACIN
     Indication: URINARY TRACT INFECTION
     Dosage: 500 MG, UNK
     Route: 048
     Dates: start: 20170412
  2. DOXYCYCLINE HYCLATE. [Suspect]
     Active Substance: DOXYCYCLINE HYCLATE
     Indication: URINARY TRACT INFECTION
     Dosage: UNK
  3. BASSADO [Suspect]
     Active Substance: DOXYCYCLINE
     Indication: URINARY TRACT INFECTION
     Dosage: 100 MG, DAILY
     Route: 048
     Dates: start: 20170417, end: 20170422

REACTIONS (12)
  - Hepatic failure [Recovering/Resolving]
  - Insomnia [Recovering/Resolving]
  - Irregular breathing [Recovering/Resolving]
  - Drug monitoring procedure not performed [Unknown]
  - Cyanosis [Recovering/Resolving]
  - Decreased appetite [Recovering/Resolving]
  - Confusional state [Recovering/Resolving]
  - Hepatitis acute [Recovering/Resolving]
  - Drug abuse [Unknown]
  - Somnolence [Recovering/Resolving]
  - Agitation [Recovering/Resolving]
  - Abdominal pain [Recovering/Resolving]

NARRATIVE: CASE EVENT DATE: 20170427
